FAERS Safety Report 7702249-9 (Version None)
Quarter: 2011Q3

REPORT INFORMATION
  Report Type: 
  Country: None (occurrence: None)
  Receive Date: 20110822
  Receipt Date: 20110811
  Transmission Date: 20111222
  Serious: Yes (Hospitalization, Other)
  Sender: FDA-Public Use
  Company Number: JP-PFIZER INC-2011183814

PATIENT
  Age: 83 Year
  Sex: Male

DRUGS (2)
  1. NATEGLINIDE [Concomitant]
     Dosage: UNK
  2. MIGLITOL [Suspect]
     Indication: DIABETES MELLITUS
     Dosage: 150 MG, 1X/DAY
     Route: 048

REACTIONS (3)
  - ENTEROCOLITIS [None]
  - ILEUS [None]
  - DIARRHOEA [None]
